FAERS Safety Report 24346006 (Version 1)
Quarter: 2024Q3

REPORT INFORMATION
  Report Type: Report from Study
  Country: US (occurrence: US)
  Receive Date: 20240920
  Receipt Date: 20240920
  Transmission Date: 20241016
  Serious: Yes (Other)
  Sender: ABBVIE
  Company Number: US-ABBVIE-5921881

PATIENT
  Sex: Male
  Weight: 97 kg

DRUGS (15)
  1. VENCLEXTA [Suspect]
     Active Substance: VENETOCLAX
     Indication: Myelodysplastic syndrome
     Dosage: 400 MG DAILY DAYS 1-14?DRUG END DATE-2024
     Route: 048
     Dates: start: 20240731
  2. VENCLEXTA [Suspect]
     Active Substance: VENETOCLAX
     Indication: Myelodysplastic syndrome
     Dosage: DAY 1
     Route: 048
     Dates: start: 20230609, end: 20230609
  3. VENCLEXTA [Suspect]
     Active Substance: VENETOCLAX
     Indication: Myelodysplastic syndrome
     Dosage: DAY 2
     Route: 048
     Dates: start: 20230610, end: 20230610
  4. VENCLEXTA [Suspect]
     Active Substance: VENETOCLAX
     Indication: Myelodysplastic syndrome
     Dosage: DAY 3
     Route: 048
     Dates: start: 20230611
  5. VENCLEXTA [Suspect]
     Active Substance: VENETOCLAX
     Indication: Myelodysplastic syndrome
     Dosage: 400 MG DAILY DAYS 1-14
     Route: 048
     Dates: start: 20240829
  6. CEFDINIR [Concomitant]
     Active Substance: CEFDINIR
     Indication: Product used for unknown indication
     Dosage: TAKE 1 CAPSULE (300 MG TOTAL) BY MOUTH 2 (TWO) TIMES A DAY ?DISPENSE: 60 CAPSULE ?REFILL: 1
  7. CHOLECALCIFEROL [Concomitant]
     Active Substance: CHOLECALCIFEROL
     Indication: Product used for unknown indication
     Dosage: TAKE 1 TABLET (2,000 UNITS TOTAL) BY MOUTH 1 (ONE) TIME EACH DAY
     Route: 048
  8. DEXAMETHASONE [Concomitant]
     Active Substance: DEXAMETHASONE
     Indication: Product used for unknown indication
     Dosage: TAKE 2 TABLETS (8 MG TOTAL) BY MOUTH 1 (ONE) TIME EACH DAY?TAKE ON DAY 8 AND 9 OF EACH CHEMOTHERA...
     Route: 048
  9. DEXLANSOPRAZOLE [Concomitant]
     Active Substance: DEXLANSOPRAZOLE
     Indication: Product used for unknown indication
     Dosage: TAKE 1 CAPSULE (60 MG TOTAL) BY MOUTH 1 (ONE) TIME EACH DAY
     Route: 048
  10. LOSARTAN [Concomitant]
     Active Substance: LOSARTAN\LOSARTAN POTASSIUM
     Indication: Product used for unknown indication
     Dosage: TAKE 1 TABLET (100 MG TOTAL) BY MOUTH 1 (ONE) TIME EACH DAY
     Route: 048
  11. TADALAFIL [Concomitant]
     Active Substance: TADALAFIL
     Indication: Product used for unknown indication
     Dosage: TAKE 1 TABLET (5 MG TOTAL) BY MOUTH 1 (ONE) TIME EACH DAY
     Route: 048
  12. TAMSULOSIN [Concomitant]
     Active Substance: TAMSULOSIN
     Indication: Product used for unknown indication
     Dosage: TAKE 1 CAPSULE (0.4 MG TOTAL) BY MOUTH 1 (ONE) TIME EACH DAY
     Route: 048
  13. TRAMADOL [Concomitant]
     Active Substance: TRAMADOL\TRAMADOL HYDROCHLORIDE
     Indication: Pain
     Dosage: TIME INTERVAL: AS NECESSARY: TAKE 1 TABLET (50 MG TOTAL ) BY MOUTH EVERY 6 (SIX) HOURS IF NEEDED ...
     Route: 048
  14. AZACITIDINE [Concomitant]
     Active Substance: AZACITIDINE
     Indication: Product used for unknown indication
     Dosage: 75 MG/M2 DAYS 1-7?28-DAY CYCLE:5 AZACITIDINE 75 MG PER METERED SQUARED IV DAILY DAYS 1 THROUGH 7
     Dates: start: 20240731, end: 20240806
  15. ACYCLOVIR [Concomitant]
     Active Substance: ACYCLOVIR
     Indication: Product used for unknown indication

REACTIONS (18)
  - Chloroma [Unknown]
  - Cholecystitis [Unknown]
  - Illness [Unknown]
  - Back pain [Recovered/Resolved]
  - Skin wound [Recovering/Resolving]
  - Lymphoedema [Unknown]
  - Benign prostatic hyperplasia [Unknown]
  - Rash [Recovered/Resolved]
  - Hyperlipidaemia [Unknown]
  - Obstructive sleep apnoea syndrome [Unknown]
  - Gynaecomastia [Unknown]
  - Arthralgia [Recovering/Resolving]
  - Graft versus host disease [Unknown]
  - Dry eye [Unknown]
  - Anaemia [Unknown]
  - Knee operation [Unknown]
  - Cholelithiasis [Unknown]
  - Nodule [Recovered/Resolved]
